FAERS Safety Report 16128998 (Version 1)
Quarter: 2019Q1

REPORT INFORMATION
  Report Type: Spontaneous
  Country: US (occurrence: US)
  Receive Date: 20190328
  Receipt Date: 20190328
  Transmission Date: 20190418
  Serious: No
  Sender: FDA-Public Use
  Company Number: US-AMGEN-USASP2019044978

PATIENT
  Age: 70 Year
  Sex: Female

DRUGS (8)
  1. VITAMIN D [Concomitant]
     Active Substance: CHOLECALCIFEROL
  2. LEVOTHYROXINE. [Concomitant]
     Active Substance: LEVOTHYROXINE
     Indication: AUTOIMMUNE THYROIDITIS
     Dosage: UNK
     Dates: start: 2016
  3. DETROL LA [Concomitant]
     Active Substance: TOLTERODINE TARTRATE
  4. TRAZODONE [Concomitant]
     Active Substance: TRAZODONE HYDROCHLORIDE
     Indication: INSOMNIA
     Dosage: 50 TO 100 MILLIGRAM
  5. TRAZODONE [Concomitant]
     Active Substance: TRAZODONE HYDROCHLORIDE
     Indication: BLADDER DISORDER
  6. CALCIUM [Concomitant]
     Active Substance: CALCIUM
  7. ESTRACE [Concomitant]
     Active Substance: ESTRADIOL
     Dosage: 0.5 GRAM, 3 TIMES/WK
  8. PROLIA [Suspect]
     Active Substance: DENOSUMAB
     Indication: OSTEOPOROSIS POSTMENOPAUSAL
     Dosage: 60 MILLIGRAM, Q6MO
     Route: 065
     Dates: start: 2016, end: 201803

REACTIONS (10)
  - Ear infection [Unknown]
  - Eczema [Unknown]
  - Blood cholesterol increased [Unknown]
  - Low density lipoprotein increased [Unknown]
  - Rash [Unknown]
  - Influenza [Unknown]
  - Blood pressure increased [Unknown]
  - Bronchitis [Unknown]
  - Food allergy [Unknown]
  - Constipation [Unknown]
